FAERS Safety Report 14704671 (Version 3)
Quarter: 2018Q3

REPORT INFORMATION
  Report Type: Spontaneous
  Country: PL (occurrence: PL)
  Receive Date: 20180402
  Receipt Date: 20180703
  Transmission Date: 20181010
  Serious: Yes (Other)
  Sender: FDA-Public Use
  Company Number: PL-AUROBINDO-AUR-APL-2018-017834

PATIENT
  Sex: Female

DRUGS (3)
  1. DINOPROST [Suspect]
     Active Substance: DINOPROST
     Indication: UTERINE HYPOTONUS
     Dosage: UNK
     Route: 019
     Dates: start: 20170503
  2. AMOXICILLIN+CLAVULANIC ACID [Suspect]
     Active Substance: AMOXICILLIN\CLAVULANIC ACID
     Indication: INFECTION
     Dosage: UNK
     Route: 065
     Dates: start: 20170501
  3. OXYTOCIN. [Suspect]
     Active Substance: OXYTOCIN
     Indication: PRODUCT USED FOR UNKNOWN INDICATION
     Dosage: UNK
     Route: 041
     Dates: start: 20170502

REACTIONS (9)
  - Maternal exposure during pregnancy [Unknown]
  - Bradycardia [Unknown]
  - Foetal heart rate deceleration abnormality [Unknown]
  - Heart rate abnormal [Unknown]
  - Pulse abnormal [Unknown]
  - Uterine tachysystole [Unknown]
  - Drug effect incomplete [Unknown]
  - Uterine contractions during pregnancy [Unknown]
  - Tachycardia foetal [Unknown]
